FAERS Safety Report 8101973-6 (Version None)
Quarter: 2012Q1

REPORT INFORMATION
  Report Type: 
  Country: None (occurrence: None)
  Receive Date: 20120131
  Receipt Date: 20120123
  Transmission Date: 20120608
  Serious: Yes (Hospitalization)
  Sender: FDA-Public Use
  Company Number: FR-ASTRAZENECA-2011SE69738

PATIENT
  Age: 74 Year
  Sex: Female

DRUGS (6)
  1. ASPIRIN [Concomitant]
     Dates: start: 20101115, end: 20111018
  2. NEXIUM [Suspect]
     Indication: ABDOMINAL PAIN UPPER
     Route: 048
     Dates: start: 20110831, end: 20111028
  3. ATENOLOL [Concomitant]
     Dates: start: 20101115, end: 20111018
  4. MOLSIDOMINE [Concomitant]
     Dates: start: 20101115
  5. PRAVASTATIN [Concomitant]
     Dates: start: 20101115
  6. GLICLAZIDE [Concomitant]
     Dates: start: 20101115

REACTIONS (2)
  - TOXIC SKIN ERUPTION [None]
  - PHOTOSENSITIVITY REACTION [None]
